FAERS Safety Report 24653167 (Version 1)
Quarter: 2024Q4

REPORT INFORMATION
  Report Type: Spontaneous
  Country: US (occurrence: US)
  Receive Date: 20241122
  Receipt Date: 20241122
  Transmission Date: 20250114
  Serious: Yes (Other)
  Sender: PFIZER
  Company Number: US-PFIZER INC-PV202400044389

PATIENT
  Age: 81 Year
  Sex: Female
  Weight: 68.7 kg

DRUGS (4)
  1. IBRANCE [Suspect]
     Active Substance: PALBOCICLIB
     Indication: Breast cancer metastatic
     Dosage: TAKE 1 TABLET DAILY/ TAKE WITH OR WITHOUT FOOD ON DAYS 1-21, OFF FOR 7 DAYS OF EACH 28 DAY CYCLE
     Route: 048
  2. IBRANCE [Suspect]
     Active Substance: PALBOCICLIB
     Indication: Menopausal symptoms
  3. LETROZOLE [Suspect]
     Active Substance: LETROZOLE
     Dosage: UNK, DAILY
  4. NITROSTAT [Concomitant]
     Active Substance: NITROGLYCERIN
     Indication: Chest pain
     Dosage: PLACE 1 TABLET UNDER THE TONGUE EVERY 5 MIN/TAKE NO MORE THAN 3 DOSES IN 15 MIN
     Route: 060

REACTIONS (4)
  - Neutropenia [Unknown]
  - Fatigue [Unknown]
  - Diarrhoea [Recovering/Resolving]
  - Skin irritation [Unknown]
